FAERS Safety Report 4479034-7 (Version None)
Quarter: 2004Q4

REPORT INFORMATION
  Report Type: 
  Country: None (occurrence: None)
  Receive Date: 20041019
  Receipt Date: 20041004
  Transmission Date: 20050328
  Serious: Yes (Other)
  Sender: FDA-Public Use
  Company Number: NZ-MERCK-0410NZL00019

PATIENT
  Age: 55 Year
  Sex: Male
  Weight: 104 kg

DRUGS (6)
  1. VIOXX [Suspect]
     Indication: SPORTS INJURY
     Route: 048
     Dates: start: 20010101
  2. LOPERAMIDE HYDROCHLORIDE [Concomitant]
     Indication: INTESTINAL FUNCTIONAL DISORDER
     Route: 048
     Dates: start: 20010301
  3. ASPIRIN [Concomitant]
     Indication: PROPHYLAXIS
     Route: 048
     Dates: start: 20030901
  4. FERROUS SULFATE [Concomitant]
     Route: 048
     Dates: start: 20030901
  5. ISOSORBIDE MONONITRATE [Concomitant]
     Indication: CARDIAC DISORDER
     Route: 048
     Dates: start: 20030901
  6. ENALAPRIL MALEATE [Concomitant]
     Indication: CARDIAC DISORDER
     Route: 048
     Dates: start: 20030901

REACTIONS (1)
  - MYOCARDIAL INFARCTION [None]
